FAERS Safety Report 10922548 (Version 1)
Quarter: 2015Q1

REPORT INFORMATION
  Report Type: Spontaneous
  Country: DE (occurrence: DE)
  Receive Date: 20150317
  Receipt Date: 20150317
  Transmission Date: 20150721
  Serious: Yes (Life-Threatening, Hospitalization, Other)
  Sender: FDA-Public Use
  Company Number: DE-ABBVIE-15P-062-1345726-00

PATIENT
  Age: 53 Year
  Sex: Male

DRUGS (5)
  1. EXVIERA [Interacting]
     Active Substance: DASABUVIR
     Indication: HEPATITIS C
     Route: 048
     Dates: start: 20150130, end: 20150205
  2. TACROLIMUS. [Interacting]
     Active Substance: TACROLIMUS
     Indication: PRODUCT USED FOR UNKNOWN INDICATION
     Route: 065
  3. VALGANCICLOVIR [Concomitant]
     Active Substance: VALGANCICLOVIR
     Indication: PRODUCT USED FOR UNKNOWN INDICATION
     Route: 065
  4. VIEKIRAX [Suspect]
     Active Substance: OMBITASVIR\PARITAPREVIR\RITONAVIR
     Indication: HEPATITIS C
     Dosage: QD
     Route: 048
     Dates: start: 20150130, end: 20150205
  5. RIBAVIRIN. [Concomitant]
     Active Substance: RIBAVIRIN
     Indication: PRODUCT USED FOR UNKNOWN INDICATION
     Route: 048
     Dates: start: 20150130

REACTIONS (7)
  - Hepatomegaly [Unknown]
  - Splenomegaly [Unknown]
  - Overdose [Recovered/Resolved]
  - Ascites [Unknown]
  - Tremor [Unknown]
  - Drug interaction [Unknown]
  - Discomfort [Unknown]

NARRATIVE: CASE EVENT DATE: 20150205
